FAERS Safety Report 7673167-X (Version None)
Quarter: 2011Q3

REPORT INFORMATION
  Report Type: 
  Country: None (occurrence: None)
  Receive Date: 20110810
  Receipt Date: 20110802
  Transmission Date: 20111222
  Serious: No
  Sender: FDA-Public Use
  Company Number: US-BIOGENIDEC-2011BI028935

PATIENT
  Age: 49 Year
  Sex: Female

DRUGS (1)
  1. TYSABRI [Suspect]
     Indication: MULTIPLE SCLEROSIS
     Route: 042
     Dates: start: 20110725

REACTIONS (11)
  - ASTHENIA [None]
  - JAW DISORDER [None]
  - LETHARGY [None]
  - ARTHRALGIA [None]
  - BALANCE DISORDER [None]
  - SENSATION OF HEAVINESS [None]
  - MIGRAINE [None]
  - DEVICE BREAKAGE [None]
  - DIARRHOEA [None]
  - ABDOMINAL DISCOMFORT [None]
  - FATIGUE [None]
